FAERS Safety Report 4700351-7 (Version None)
Quarter: 2005Q2

REPORT INFORMATION
  Report Type: 
  Country: None (occurrence: None)
  Receive Date: 20050624
  Receipt Date: 20040607
  Transmission Date: 20051028
  Serious: Yes (Death)
  Sender: FDA-Public Use
  Company Number: 363600

PATIENT
  Age: 58 Year
  Sex: Male

DRUGS (3)
  1. XELODA [Suspect]
     Indication: METASTATIC NEOPLASM
     Dosage: ORAL
     Route: 048
  2. LORTAB [Concomitant]
  3. OXALIPLATIN (OXALIPLATIN) [Concomitant]

REACTIONS (3)
  - AGITATION [None]
  - BLOOD ALKALINE PHOSPHATASE INCREASED [None]
  - HALLUCINATION [None]
